FAERS Safety Report 6987116-0 (Version None)
Quarter: 2010Q3

REPORT INFORMATION
  Report Type: 
  Country: None (occurrence: None)
  Receive Date: 20100916
  Receipt Date: 20100831
  Transmission Date: 20110219
  Serious: Yes (Other)
  Sender: FDA-Public Use
  Company Number: BR-JNJFOC-20100904444

PATIENT
  Age: 50 Year
  Sex: Female

DRUGS (2)
  1. TYLENOL [Suspect]
     Route: 048
  2. TYLENOL [Suspect]
     Indication: ABDOMINAL PAIN
     Route: 048

REACTIONS (1)
  - HAEMORRHAGE [None]
